FAERS Safety Report 5358159-8 (Version None)
Quarter: 2007Q2

REPORT INFORMATION
  Report Type: 
  Country: None (occurrence: None)
  Receive Date: 20070530
  Receipt Date: 20061127
  Transmission Date: 20071010
  Serious: Yes (Hospitalization)
  Sender: FDA-Public Use
  Company Number: US200605005633

PATIENT
  Sex: Male
  Weight: 156.5 kg

DRUGS (1)
  1. ZYPREXA [Suspect]
     Dosage: SEE IMAGE
     Dates: start: 20020701, end: 20030430

REACTIONS (6)
  - BLOOD CHOLESTEROL [None]
  - BLOOD TRIGLYCERIDES [None]
  - DEHYDRATION [None]
  - DIABETES MELLITUS [None]
  - DIABETIC KETOACIDOSIS [None]
  - METABOLIC DISORDER [None]
